FAERS Safety Report 21952184 (Version 1)
Quarter: 2023Q1

REPORT INFORMATION
  Report Type: Spontaneous
  Country: US (occurrence: US)
  Receive Date: 20230203
  Receipt Date: 20230203
  Transmission Date: 20230417
  Serious: Yes (Death)
  Sender: FDA-Public Use
  Company Number: US-AMNEAL PHARMACEUTICALS-2023-AMRX-00297

PATIENT
  Sex: Male

DRUGS (3)
  1. RYTARY [Suspect]
     Active Substance: CARBIDOPA\LEVODOPA
     Indication: Product used for unknown indication
     Dosage: 48.75-195MG AND 61.25-245MG ,1 CAPSULE BY MOUTH EVERY 3 HOURS (5 TIMES A DAY)
     Route: 048
  2. RYTARY [Suspect]
     Active Substance: CARBIDOPA\LEVODOPA
     Dosage: 48.75-195MG AND 61.25-245MG 1 CAPSULE EACH BY MOUTH EVERY 3 HOURS (8 TIMES DAILY)
     Route: 048
     Dates: start: 20220125, end: 2022
  3. RYTARY [Suspect]
     Active Substance: CARBIDOPA\LEVODOPA
     Dosage: 48.75-195MG AND 61.25-245MG, 1 CAPSULE OF EACH BY MOUTH 5 TIMES A DAY
     Route: 048
     Dates: start: 20220809, end: 2022

REACTIONS (1)
  - Adverse event [Fatal]
